FAERS Safety Report 20722769 (Version 5)
Quarter: 2023Q2

REPORT INFORMATION
  Report Type: Report from Study
  Country: US (occurrence: US)
  Receive Date: 20220419
  Receipt Date: 20230524
  Transmission Date: 20230722
  Serious: Yes (Other)
  Sender: FDA-Public Use
  Company Number: US-ABBVIE-22K-163-4319014-00

PATIENT
  Sex: Female

DRUGS (2)
  1. IMBRUVICA [Suspect]
     Active Substance: IBRUTINIB
     Indication: Follicular lymphoma
     Route: 048
     Dates: start: 20191230
  2. IMBRUVICA [Suspect]
     Active Substance: IBRUTINIB
     Indication: Follicular lymphoma
     Route: 048
     Dates: start: 201912, end: 201912

REACTIONS (13)
  - Cardiac failure congestive [Unknown]
  - Influenza [Unknown]
  - Throat irritation [Unknown]
  - Hypersensitivity [Unknown]
  - Transfusion [Unknown]
  - Decreased appetite [Unknown]
  - Peripheral swelling [Unknown]
  - Blood pressure decreased [Unknown]
  - Skin laceration [Unknown]
  - Cystitis [Unknown]
  - Skin discolouration [Unknown]
  - Tendon rupture [Unknown]
  - Hot flush [Unknown]

NARRATIVE: CASE EVENT DATE: 20220101
